FAERS Safety Report 9168725 (Version 2)
Quarter: 2013Q4

REPORT INFORMATION
  Report Type: Spontaneous
  Country: US (occurrence: US)
  Receive Date: 20130318
  Receipt Date: 20131206
  Transmission Date: 20140711
  Serious: Yes (Other)
  Sender: FDA-Public Use
  Company Number: US-PFIZER INC-2013086927

PATIENT
  Age: 53 Year
  Sex: Female
  Weight: 140.59 kg

DRUGS (2)
  1. LYRICA [Suspect]
     Indication: NEUROPATHY PERIPHERAL
     Dosage: 150 MG, 2X/DAY
     Route: 048
     Dates: start: 201201, end: 201203
  2. DILANTIN [Suspect]
     Indication: CONVULSION
     Dosage: (THREE 100MG CAPSULES IN THE MORNING AND FOUR 100MG CAPSULES IN THE EVENING), 2X/DAY
     Route: 048

REACTIONS (9)
  - Mental impairment [Recovered/Resolved]
  - Disturbance in attention [Recovered/Resolved]
  - Emotional disorder [Recovered/Resolved]
  - Impaired work ability [Recovered/Resolved]
  - Dysarthria [Recovered/Resolved]
  - Pain in extremity [Recovered/Resolved]
  - Burning sensation [Recovered/Resolved]
  - Drug ineffective [Recovered/Resolved]
  - Feeling abnormal [Unknown]
